FAERS Safety Report 4510727-9 (Version None)
Quarter: 2004Q4

REPORT INFORMATION
  Report Type: 
  Country: None (occurrence: None)
  Receive Date: 20041025
  Receipt Date: 20040315
  Transmission Date: 20050328
  Serious: Yes (Other)
  Sender: FDA-Public Use
  Company Number: US-JNJFOC-20040205269

PATIENT
  Age: 54 Year
  Sex: Female
  Weight: 54.4316 kg

DRUGS (7)
  1. REMICADE [Suspect]
     Indication: CROHN'S DISEASE
     Dosage: 300 MG, INTRAVENOUS
     Route: 042
     Dates: start: 20040121, end: 20040121
  2. REMICADE [Suspect]
     Indication: CROHN'S DISEASE
     Dosage: 300 MG, INTRAVENOUS
     Route: 042
     Dates: start: 20040107
  3. SYNTHROID [Concomitant]
  4. ENTOCORT (BUDESONIDE) [Concomitant]
  5. PROTONIX [Concomitant]
  6. LEVOTHYROID (LEVOTHYROXINE) [Concomitant]
  7. ZOLOFT [Concomitant]

REACTIONS (2)
  - GRAND MAL CONVULSION [None]
  - MEMORY IMPAIRMENT [None]
